FAERS Safety Report 15515844 (Version 1)
Quarter: 2018Q4

REPORT INFORMATION
  Report Type: Spontaneous
  Country: FR (occurrence: FR)
  Receive Date: 20181017
  Receipt Date: 20181017
  Transmission Date: 20190205
  Serious: Yes (Hospitalization)
  Sender: FDA-Public Use
  Company Number: FR-AUROBINDO-AUR-APL-2018-050428

PATIENT
  Age: 17 Year
  Sex: Female
  Weight: 85 kg

DRUGS (2)
  1. PARACETAMOL [Suspect]
     Active Substance: ACETAMINOPHEN
     Indication: DYSMENORRHOEA
     Dosage: 13 G BETWEEN 19H AND 22H
     Route: 048
     Dates: start: 20180915, end: 20180915
  2. AMOXICILLIN. [Suspect]
     Active Substance: AMOXICILLIN
     Indication: DYSMENORRHOEA
     Dosage: 10 TABLETS OF 500 MG BETWEEN 7 PM AND 10 PM
     Route: 048
     Dates: start: 20180915, end: 20180915

REACTIONS (3)
  - Analgesic drug level increased [Recovered/Resolved]
  - Gastrointestinal disorder [Recovered/Resolved]
  - Vomiting [Recovered/Resolved]

NARRATIVE: CASE EVENT DATE: 20180916
